FAERS Safety Report 16196707 (Version 1)
Quarter: 2019Q2

REPORT INFORMATION
  Report Type: Spontaneous
  Country: CH (occurrence: CH)
  Receive Date: 20190415
  Receipt Date: 20190415
  Transmission Date: 20190711
  Serious: Yes (Other)
  Sender: FDA-Public Use
  Company Number: CH-LUPIN PHARMACEUTICALS INC.-2019-02375

PATIENT
  Age: 14 Year
  Sex: Male

DRUGS (3)
  1. AMOXICILLIN AND CLAVULANIC ACID [Suspect]
     Active Substance: AMOXICILLIN\CLAVULANIC ACID
     Dosage: UNK
     Route: 048
  2. CEFUROXIME. [Suspect]
     Active Substance: CEFUROXIME
     Indication: DRUG PROVOCATION TEST
     Dosage: UNK
     Route: 048
  3. AMOXICILLIN AND CLAVULANIC ACID [Suspect]
     Active Substance: AMOXICILLIN\CLAVULANIC ACID
     Indication: SKIN INFECTION
     Dosage: UNK
     Route: 065

REACTIONS (4)
  - Rash pruritic [Unknown]
  - Rash maculo-papular [Unknown]
  - Therapeutic product cross-reactivity [Unknown]
  - Rash macular [Unknown]
